FAERS Safety Report 15713756 (Version 2)
Quarter: 2019Q4

REPORT INFORMATION
  Report Type: Spontaneous
  Country: PT (occurrence: PT)
  Receive Date: 20181212
  Receipt Date: 20191204
  Transmission Date: 20200122
  Serious: Yes (Other)
  Sender: FDA-Public Use
  Company Number: PT-PFIZER INC-2018505459

PATIENT
  Age: 68 Year
  Sex: Male

DRUGS (3)
  1. ZOLEDRONIC ACID [Suspect]
     Active Substance: ZOLEDRONIC ACID
     Indication: PROSTATE CANCER METASTATIC
     Dosage: 4 MG, MONTHLY (1 IV ADMINISTRATION FOR 15 MIN)
     Route: 042
     Dates: start: 201502
  2. CYPROTERONE ACETATE [Concomitant]
     Active Substance: CYPROTERONE ACETATE
     Indication: PROSTATE CANCER METASTATIC
     Dosage: UNK
     Dates: start: 201502
  3. TRIPTORELIN [Concomitant]
     Active Substance: TRIPTORELIN
     Indication: PROSTATE CANCER METASTATIC
     Dosage: UNK
     Dates: start: 201502

REACTIONS (1)
  - Fanconi syndrome acquired [Recovering/Resolving]

NARRATIVE: CASE EVENT DATE: 201604
